FAERS Safety Report 4403148-0 (Version None)
Quarter: 2004Q3

REPORT INFORMATION
  Report Type: 
  Country: None (occurrence: None)
  Receive Date: 20040721
  Receipt Date: 20040519
  Transmission Date: 20050211
  Serious: No
  Sender: FDA-Public Use
  Company Number: US-GLAXOSMITHKLINE-A0511419A

PATIENT
  Sex: Female

DRUGS (5)
  1. IMITREX [Suspect]
     Indication: MIGRAINE
     Dosage: 100MG AS REQUIRED
     Route: 048
  2. IBUPROFEN [Concomitant]
     Dosage: 3TAB AS REQUIRED
     Route: 048
  3. TYLENOL [Concomitant]
     Dosage: 3TAB AS REQUIRED
     Route: 048
  4. METHOCARBAMOL [Concomitant]
     Dosage: 500MG AS REQUIRED
     Route: 065
  5. UNKNOWN DRUG [Concomitant]

REACTIONS (1)
  - DRUG INEFFECTIVE [None]
